FAERS Safety Report 14517893 (Version 1)
Quarter: 2018Q1

REPORT INFORMATION
  Report Type: Spontaneous
  Country: US (occurrence: US)
  Receive Date: 20180212
  Receipt Date: 20180212
  Transmission Date: 20180509
  Serious: No
  Sender: FDA-Public Use
  Company Number: US-PFIZER INC-2018057734

PATIENT
  Age: 46 Year
  Sex: Female

DRUGS (1)
  1. SUTENT [Suspect]
     Active Substance: SUNITINIB MALATE
     Indication: RENAL CANCER
     Dosage: 50 MG, CYCLIC (QD X 4 WEEKS ON THEN 2 WEEKS OFF) (QDX 28 DAYS THEN OFF 14 DAYS)
     Route: 048
     Dates: start: 20171229

REACTIONS (4)
  - Dyschezia [Unknown]
  - Pallor [Unknown]
  - White blood cell count decreased [Unknown]
  - Swelling face [Unknown]

NARRATIVE: CASE EVENT DATE: 20180130
